FAERS Safety Report 23518394 (Version 2)
Quarter: 2024Q2

REPORT INFORMATION
  Report Type: Spontaneous
  Country: JP (occurrence: JP)
  Receive Date: 20240213
  Receipt Date: 20240412
  Transmission Date: 20240715
  Serious: Yes (Hospitalization)
  Sender: FDA-Public Use
  Company Number: JP-CARA THERAPEUTICS, INC.-2024-00046-JP

PATIENT
  Age: 61 Year
  Sex: Male
  Weight: 43.6 kg

DRUGS (17)
  1. KORSUVA [Suspect]
     Active Substance: DIFELIKEFALIN ACETATE
     Indication: Pruritus
     Dosage: 25 ?G/ (25 ?G/   )
     Route: 042
     Dates: start: 20240105, end: 20240111
  2. KORSUVA [Suspect]
     Active Substance: DIFELIKEFALIN ACETATE
     Dosage: 17.5 ?G (17.5 ?G/   )
     Route: 042
     Dates: start: 20240122, end: 20240124
  3. CALCIUM CARBONATE [Concomitant]
     Active Substance: CALCIUM CARBONATE
     Indication: Hyperphosphataemia
     Dosage: 500 MG / DAY
     Route: 048
     Dates: start: 20080514
  4. UNSPECIFIED INGREDIENT [Concomitant]
     Active Substance: UNSPECIFIED INGREDIENT
     Indication: Cirrhosis alcoholic
     Dosage: 50 G / DAY
     Route: 048
     Dates: start: 20190829
  5. URSO [Concomitant]
     Active Substance: URSODIOL
     Indication: Cholecystitis
     Dosage: 100 MG / DAY
     Route: 048
     Dates: start: 20230311
  6. NICORANDIL [Concomitant]
     Active Substance: NICORANDIL
     Indication: Angina pectoris
     Dosage: 10 MG / DAY
     Route: 048
     Dates: start: 20080605
  7. CILOSTAZOL [Concomitant]
     Active Substance: CILOSTAZOL
     Indication: Lacunar infarction
     Dosage: 200 MG/ DAY
     Route: 048
     Dates: start: 20220908
  8. VONOPRAZAN FUMARATE [Concomitant]
     Active Substance: VONOPRAZAN FUMARATE
     Indication: Gastrooesophageal reflux disease
     Dosage: 20 MG/ DAY
     Route: 048
     Dates: start: 20240111
  9. NIFEDIPINE [Concomitant]
     Active Substance: NIFEDIPINE
     Indication: Hypertension
     Dosage: 20 MG / DAY
     Route: 048
     Dates: start: 2000
  10. EVOCALCET [Concomitant]
     Active Substance: EVOCALCET
     Indication: Hyperparathyroidism
     Dosage: 1 MG / DAY
     Route: 048
     Dates: start: 20231225
  11. LAGNOS NF [Concomitant]
     Indication: Hyperammonaemia
     Dosage: 3 SACHETS, 3 TIMES PER DAY
     Route: 048
     Dates: start: 20240115
  12. DARBEPOETIN ALFA [Concomitant]
     Active Substance: DARBEPOETIN ALFA
     Indication: Nephrogenic anaemia
     Dosage: 60 ?G/ WEEK
     Route: 042
     Dates: start: 20080514
  13. TRAMADOL [Concomitant]
     Active Substance: TRAMADOL\TRAMADOL HYDROCHLORIDE
     Indication: Pain
     Dosage: 150 MG/ DAY
     Route: 048
     Dates: start: 20230724
  14. AMINO ACIDS, SOURCE UNSPECIFIED [Concomitant]
     Active Substance: AMINO ACIDS, SOURCE UNSPECIFIED
     Indication: Hypoproteinaemia
     Dosage: 200 ML, MONDAY, WEDNESDAY, AND FRIDAY
     Route: 042
     Dates: start: 20230922
  15. HISHIPHAGEN C [CYSTEINE HYDROCHLORIDE;GLYCINE;GLYCYRRHIZIC ACID, AMMON [Concomitant]
     Indication: Cirrhosis alcoholic
     Dosage: 40 ML, MONDAY, WEDNESDAY, AND FRIDAY
     Route: 042
     Dates: start: 20141001
  16. BIO-THREE [Concomitant]
     Active Substance: HERBALS
     Indication: Product used for unknown indication
     Dosage: UNK
     Route: 065
  17. MAXACALCITOL [Concomitant]
     Active Substance: MAXACALCITOL
     Indication: Product used for unknown indication
     Dosage: UNK
     Route: 065

REACTIONS (4)
  - Epilepsy [Recovered/Resolved]
  - Melaena [Recovered/Resolved]
  - Haematemesis [Recovered/Resolved]
  - Amnesia [Recovered/Resolved]

NARRATIVE: CASE EVENT DATE: 20240110
